FAERS Safety Report 23030423 (Version 1)
Quarter: 2023Q4

REPORT INFORMATION
  Report Type: Spontaneous
  Country: ES (occurrence: ES)
  Receive Date: 20231005
  Receipt Date: 20231005
  Transmission Date: 20240110
  Serious: Yes (Life-Threatening, Hospitalization, Other)
  Sender: FDA-Public Use
  Company Number: ES-AEMPS-1429497

PATIENT
  Age: 56 Year
  Sex: Female
  Weight: 58.8 kg

DRUGS (2)
  1. QUETIAPINE [Interacting]
     Active Substance: QUETIAPINE
     Indication: Suicidal ideation
     Dosage: 250 MILLIGRAM, 1 TOTAL (10 TABLETS)
     Route: 048
     Dates: start: 20230710, end: 20230710
  2. CLORAZEPATE DIPOTASSIUM [Interacting]
     Active Substance: CLORAZEPATE DIPOTASSIUM
     Indication: Suicidal ideation
     Dosage: 500 MILLIGRAM, 1 TOTAL (50 TABLETS)
     Route: 048
     Dates: start: 20230710, end: 20230710

REACTIONS (3)
  - Respiratory tract infection [Recovered/Resolved]
  - Metabolic acidosis [Recovered/Resolved]
  - Coma [Recovered/Resolved]

NARRATIVE: CASE EVENT DATE: 20230710
